FAERS Safety Report 10351697 (Version 4)
Quarter: 2015Q1

REPORT INFORMATION
  Report Type: Report from Study
  Country: DE (occurrence: DE)
  Receive Date: 20140730
  Receipt Date: 20150127
  Transmission Date: 20150720
  Serious: Yes (Hospitalization)
  Sender: FDA-Public Use
  Company Number: DE-PFIZER INC-2014203546

PATIENT
  Age: 73 Year
  Sex: Male
  Weight: 82 kg

DRUGS (11)
  1. CLEXANE [Concomitant]
     Active Substance: ENOXAPARIN SODIUM
     Dosage: 0.4 ML, DAILY
     Dates: start: 20140617, end: 20140620
  2. COTRIM D.S. [Concomitant]
     Active Substance: SULFAMETHOXAZOLE\TRIMETHOPRIM
     Dosage: 25500 MG, DAILY
     Dates: start: 20140623
  3. RITUXIMAB [Suspect]
     Active Substance: RITUXIMAB
     Dosage: 750 MG, UNK
     Dates: start: 20140618
  4. DEXAMETHASONE. [Suspect]
     Active Substance: DEXAMETHASONE
     Dosage: 40 MG, UNK
     Dates: start: 20140619
  5. CYTARABINE. [Suspect]
     Active Substance: CYTARABINE
     Dosage: 8000 MG, UNK
     Dates: start: 20140620
  6. NEULASTA [Concomitant]
     Active Substance: PEGFILGRASTIM
     Dosage: 6 MG, DAILY
     Dates: start: 20140624
  7. FENISTIL [Concomitant]
     Active Substance: DIMETHINDENE
     Dosage: 1 AMPULE, DAILY
     Dates: start: 20140624
  8. TEMSIROLIMUS [Suspect]
     Active Substance: TEMSIROLIMUS
     Dosage: 50 MG, CYCLIC (EACH CYCLE ON DAY 1 AND DAY 8)
     Dates: start: 20140617
  9. TAMSULOSIN [Concomitant]
     Active Substance: TAMSULOSIN
     Dosage: 0.4 MG, DAILY
     Dates: start: 20140617
  10. CISPLATIN. [Suspect]
     Active Substance: CISPLATIN
     Dosage: 200 MG, UNK
     Dates: start: 20140619
  11. ALLOPURINOL. [Concomitant]
     Active Substance: ALLOPURINOL
     Dosage: 300 MG, DAILY
     Dates: start: 20140623

REACTIONS (1)
  - Pancytopenia [Recovered/Resolved]

NARRATIVE: CASE EVENT DATE: 20140701
